FAERS Safety Report 23295791 (Version 1)
Quarter: 2023Q4

REPORT INFORMATION
  Report Type: Report from Study
  Country: TW (occurrence: TW)
  Receive Date: 20231214
  Receipt Date: 20231214
  Transmission Date: 20240109
  Serious: Yes (Other)
  Sender: FDA-Public Use
  Company Number: TW-BAXTER-2023BAX037842

PATIENT
  Age: 31 Year
  Sex: Male
  Weight: 67.4 kg

DRUGS (13)
  1. CYCLOPHOSPHAMIDE [Suspect]
     Active Substance: CYCLOPHOSPHAMIDE
     Indication: Diffuse large B-cell lymphoma
     Dosage: 1297.5 MG, EVERY 3 WEEKS
     Route: 042
     Dates: start: 20230914, end: 20231012
  2. CYCLOPHOSPHAMIDE [Suspect]
     Active Substance: CYCLOPHOSPHAMIDE
     Dosage: 1342.5 MG, EVERY 3 WEEKS
     Route: 042
     Dates: start: 20231102
  3. EPCORITAMAB [Suspect]
     Active Substance: EPCORITAMAB
     Indication: Diffuse large B-cell lymphoma
     Dosage: 48 MG C1 (STEP-UP), CYCLES 2 - 4 (21-DAY CYCLE, WEEKLY DOSE), C5 - 8 (21-DAY CYCLE, EVERY 3 WEEKS) P
     Route: 058
     Dates: start: 20230914
  4. RITUXIMAB [Suspect]
     Active Substance: RITUXIMAB
     Indication: Diffuse large B-cell lymphoma
     Dosage: 648.75 MG, EVERY 3 WEEKS
     Route: 042
     Dates: start: 20230914, end: 20231012
  5. RITUXIMAB [Suspect]
     Active Substance: RITUXIMAB
     Dosage: 671.25 MG, EVERY 3 WEEKS
     Route: 042
     Dates: start: 20231102
  6. VINCRISTINE [Suspect]
     Active Substance: VINCRISTINE
     Indication: Diffuse large B-cell lymphoma
     Dosage: 2 MG, EVERY 3 WEEKS
     Route: 042
     Dates: start: 20230914
  7. DOXORUBICIN [Suspect]
     Active Substance: DOXORUBICIN
     Indication: Diffuse large B-cell lymphoma
     Dosage: 86.55 MG, EVERY 3 WEEKS
     Route: 042
     Dates: start: 20230914, end: 20231012
  8. DOXORUBICIN [Suspect]
     Active Substance: DOXORUBICIN
     Dosage: 89.5 MG, EVERY 3 WEEKS
     Route: 042
     Dates: start: 20231102
  9. PREDNISONE [Suspect]
     Active Substance: PREDNISONE
     Indication: Diffuse large B-cell lymphoma
     Dosage: 100 MG C1-6, DAY 1-5, EVERY 1 DAYS
     Route: 048
     Dates: start: 20230914
  10. BACIDE [Concomitant]
     Indication: Antifungal prophylaxis
     Dosage: 1 DOSAGE FORM FREQUENCY: QN
     Route: 065
     Dates: start: 20231004
  11. VALTREX [Concomitant]
     Active Substance: VALACYCLOVIR HYDROCHLORIDE
     Indication: Antiviral prophylaxis
     Dosage: 500 MG, EVERY 2 DAYS
     Route: 065
     Dates: start: 20231012
  12. Novamin [Concomitant]
     Indication: Vomiting
     Dosage: 5 MG, 3/DAYS
     Route: 065
     Dates: start: 20231019
  13. Mopride [Concomitant]
     Indication: Diarrhoea
     Dosage: 5 MG, 3/DAYS
     Route: 065
     Dates: start: 20231025

REACTIONS (1)
  - Cytokine release syndrome [Unknown]

NARRATIVE: CASE EVENT DATE: 20231003
